FAERS Safety Report 15862432 (Version 1)
Quarter: 2018Q4

REPORT INFORMATION
  Report Type: Spontaneous
  Country: US (occurrence: US)
  Receive Date: 20181231
  Receipt Date: 20181231
  Transmission Date: 20190205
  Serious: Yes (Life-Threatening, Hospitalization)
  Sender: FDA-Public Use
  Company Number: None

PATIENT
  Age: 57 Year
  Sex: Female
  Weight: 66.7 kg

DRUGS (1)
  1. MIRCERA [Suspect]
     Active Substance: METHOXY POLYETHYLENE GLYCOL-EPOETIN BETA
     Indication: ANAEMIA
     Dosage: ?          OTHER DOSE:225MCG;OTHER FREQUENCY:EVERY 2 WEEKS;?
     Route: 042
     Dates: start: 20180103, end: 20180103

REACTIONS (4)
  - Seizure like phenomena [None]
  - Unresponsive to stimuli [None]
  - Muscle twitching [None]
  - Restlessness [None]

NARRATIVE: CASE EVENT DATE: 20180103
